FAERS Safety Report 25888306 (Version 2)
Quarter: 2025Q4

REPORT INFORMATION
  Report Type: Spontaneous
  Country: US (occurrence: US)
  Receive Date: 20251007
  Receipt Date: 20251027
  Transmission Date: 20260117
  Serious: Yes (Hospitalization, Other)
  Sender: TEVA
  Company Number: US-TEVA-VS-3377867

PATIENT
  Age: 14 Year
  Sex: Male

DRUGS (4)
  1. ZOLEDRONIC ACID [Suspect]
     Active Substance: ZOLEDRONIC ACID
     Indication: Hypercalcaemia
     Dosage: IV ZOLEDRONIC ACID
     Route: 065
  2. DENOSUMAB [Suspect]
     Active Substance: DENOSUMAB
     Indication: Granuloma
     Dosage: RECEIVED MULTIPLE DOSES OF DENOSUMAB OVER 4 YEARS FOR EVERY THREE MONTHS; AND MISSED THE LAST DOSE
     Route: 065
  3. CALCITONIN [Suspect]
     Active Substance: CALCITONIN
     Indication: Hypercalcaemia
     Dosage: 4 UNITS/KG
     Route: 058
  4. CALCITONIN [Suspect]
     Active Substance: CALCITONIN
     Indication: Hypercalcaemia
     Dosage: 2 UNITS/KG
     Route: 058

REACTIONS (6)
  - Rebound effect [Unknown]
  - Product dose omission issue [Unknown]
  - Acute kidney injury [Recovering/Resolving]
  - Influenza like illness [Unknown]
  - Drug ineffective [Unknown]
  - Pyrexia [Unknown]
